FAERS Safety Report 21315728 (Version 1)
Quarter: 2022Q3

REPORT INFORMATION
  Report Type: Spontaneous
  Country: AT (occurrence: AT)
  Receive Date: 20220909
  Receipt Date: 20220909
  Transmission Date: 20221027
  Serious: Yes (Hospitalization)
  Sender: FDA-Public Use
  Company Number: AT-BAYER-2022A123660

PATIENT
  Sex: Male

DRUGS (2)
  1. VERICIGUAT HYDROCHLORIDE [Suspect]
     Active Substance: VERICIGUAT HYDROCHLORIDE
     Dosage: 10 MG, QD
  2. VERICIGUAT HYDROCHLORIDE [Suspect]
     Active Substance: VERICIGUAT HYDROCHLORIDE
     Dosage: 2 DF, QD

REACTIONS (2)
  - Hospitalisation [Unknown]
  - Product use issue [Unknown]

NARRATIVE: CASE EVENT DATE: 20220801
